FAERS Safety Report 5115785-9 (Version None)
Quarter: 2006Q3

REPORT INFORMATION
  Report Type: 
  Country: None (occurrence: None)
  Receive Date: 20060927
  Receipt Date: 20060920
  Transmission Date: 20061208
  Serious: Yes (Other)
  Sender: FDA-Public Use
  Company Number: ES-GILEAD-2006-0010247

PATIENT
  Age: 34 Year
  Sex: Male
  Weight: 98 kg

DRUGS (4)
  1. TRUVADA [Suspect]
     Route: 048
     Dates: start: 20060717
  2. VIRAMUNE [Suspect]
     Route: 048
     Dates: start: 20060717
  3. ATENOLOL [Concomitant]
     Route: 048
  4. TERTENSIF [Concomitant]
     Route: 048

REACTIONS (3)
  - CONDITION AGGRAVATED [None]
  - DYSPNOEA [None]
  - HYPERTENSION [None]
